FAERS Safety Report 6429480-7 (Version None)
Quarter: 2009Q4

REPORT INFORMATION
  Report Type: 
  Country: None (occurrence: None)
  Receive Date: 20091105
  Receipt Date: 20090915
  Transmission Date: 20100525
  Serious: No
  Sender: FDA-Public Use
  Company Number: US-ABBOTT-09P-163-0579254-00

PATIENT
  Age: 35 Year
  Sex: Female

DRUGS (4)
  1. KALETRA [Suspect]
     Indication: DRUG USE FOR UNKNOWN INDICATION
     Dosage: DAILY DOSE: 800/200 MILLIGRAMS
     Route: 048
     Dates: start: 20090227
  2. EMTRICITABINE W/TENOFOVIR DISOPROXIL FUMARATE [Suspect]
     Indication: DRUG USE FOR UNKNOWN INDICATION
     Dosage: DAILY DOSE: 1 TABLET
     Route: 048
     Dates: start: 20090227
  3. RETROVIR [Suspect]
     Indication: DRUG USE FOR UNKNOWN INDICATION
     Dosage: DAILY DOSE: 2 DOSAGE FORMS
     Route: 042
     Dates: start: 20090529, end: 20090529
  4. RETROVIR [Suspect]
     Dosage: DAILY DOSE: 1 DOSAGE FORM
     Route: 042
     Dates: start: 20090529, end: 20090529

REACTIONS (4)
  - COAGULOPATHY [None]
  - HEPATITIS B [None]
  - SHORTENED CERVIX [None]
  - UTERINE LEIOMYOMA [None]
